FAERS Safety Report 9848098 (Version 1)
Quarter: 2014Q1

REPORT INFORMATION
  Report Type: Spontaneous
  Country: US (occurrence: None)
  Receive Date: 20140127
  Receipt Date: 20140127
  Transmission Date: 20141002
  Serious: Yes (Disabling)
  Sender: FDA-Public Use
  Company Number: None

PATIENT
  Age: 71 Year
  Sex: Female

DRUGS (1)
  1. DULOXETINE [Suspect]
     Dosage: 3 PILLS ONCE DAILY TAKEN BY MOUTH
     Route: 048
     Dates: start: 20131230, end: 20140118

REACTIONS (4)
  - Pain in extremity [None]
  - Condition aggravated [None]
  - Drug ineffective [None]
  - Product substitution issue [None]
